FAERS Safety Report 12076150 (Version 3)
Quarter: 2017Q3

REPORT INFORMATION
  Report Type: Spontaneous
  Country: US (occurrence: US)
  Receive Date: 20160215
  Receipt Date: 20170811
  Transmission Date: 20171127
  Serious: Yes (Hospitalization, Other)
  Sender: FDA-Public Use
  Company Number: US-AUROBINDO-AUR-APL-2016-01486

PATIENT

DRUGS (7)
  1. BUPIVACAINE HYDROCHLORIDE. [Suspect]
     Active Substance: BUPIVACAINE HYDROCHLORIDE
     Dosage: 0.39 MG/KG, UNK
     Route: 008
  2. FENTANYL. [Concomitant]
     Active Substance: FENTANYL
     Indication: ANAESTHESIA
     Dosage: 2 ?G/ML, AT A RATE OF 2.5 ML/H
     Route: 008
  3. DEXMEDETOMIDINE. [Concomitant]
     Active Substance: DEXMEDETOMIDINE
     Indication: SEDATION
  4. BUPIVACAINE HYDROCHLORIDE. [Suspect]
     Active Substance: BUPIVACAINE HYDROCHLORIDE
     Indication: ANAESTHESIA
     Dosage: 0.31 MG/KG, 2 ML
     Route: 008
  5. MORPHINE [Concomitant]
     Active Substance: MORPHINE
     Indication: SEDATION
  6. FENTANYL. [Concomitant]
     Active Substance: FENTANYL
     Dosage: 2 ?G/ML, AT A RATE OF 2.5 ML/H
     Route: 008
  7. BUPIVACAINE HYDROCHLORIDE. [Suspect]
     Active Substance: BUPIVACAINE HYDROCHLORIDE
     Dosage: 0.39 MG/KG, UNK
     Route: 008

REACTIONS (4)
  - Intra-abdominal pressure increased [Unknown]
  - Toxicity to various agents [Recovered/Resolved]
  - Hepatic function abnormal [Unknown]
  - Seizure [Recovered/Resolved]
